FAERS Safety Report 7213159-8 (Version None)
Quarter: 2010Q4

REPORT INFORMATION
  Report Type: 
  Country: None (occurrence: None)
  Receive Date: 20101227
  Receipt Date: 20101227
  Transmission Date: 20110411
  Serious: Yes (Disabling)
  Sender: FDA-Public Use
  Company Number: 1022556-2010-00084

PATIENT
  Sex: Male

DRUGS (1)
  1. GOLD BOND MEDICATED POWDER 10 OZ. [Suspect]
     Dosage: TOPICAL
     Route: 061

REACTIONS (2)
  - IRRITABILITY [None]
  - SCAR [None]
